FAERS Safety Report 15469509 (Version 2)
Quarter: 2018Q4

REPORT INFORMATION
  Report Type: Spontaneous
  Country: JP (occurrence: JP)
  Receive Date: 20181005
  Receipt Date: 20181025
  Transmission Date: 20190205
  Serious: Yes (Hospitalization)
  Sender: FDA-Public Use
  Company Number: JP-JNJFOC-20181006883

PATIENT
  Age: 31 Year
  Sex: Male
  Weight: 47 kg

DRUGS (7)
  1. SYMPROIC [Concomitant]
     Active Substance: NALDEMEDINE
     Route: 048
  2. YONDELIS [Suspect]
     Active Substance: TRABECTEDIN
     Indication: NEUROFIBROSARCOMA
     Dosage: CYCLE 1-2
     Route: 041
     Dates: start: 20180905
  3. CELECOX [Concomitant]
     Active Substance: CELECOXIB
     Route: 048
  4. BETAMETHASONE. [Concomitant]
     Active Substance: BETAMETHASONE
     Route: 065
  5. HYDROMORPHONE HYDROCHLORIDE. [Concomitant]
     Active Substance: HYDROMORPHONE HYDROCHLORIDE
     Route: 048
  6. CYMBALTA [Concomitant]
     Active Substance: DULOXETINE HYDROCHLORIDE
     Route: 048
  7. LYRICA [Concomitant]
     Active Substance: PREGABALIN
     Route: 048

REACTIONS (1)
  - Supraventricular tachycardia [Recovering/Resolving]

NARRATIVE: CASE EVENT DATE: 20180926
